FAERS Safety Report 9927913 (Version 1)
Quarter: 2014Q1

REPORT INFORMATION
  Report Type: Spontaneous
  Country: US (occurrence: US)
  Receive Date: 20140227
  Receipt Date: 20140227
  Transmission Date: 20141002
  Serious: No
  Sender: FDA-Public Use
  Company Number: US-PFIZER INC-2014052432

PATIENT
  Sex: Female

DRUGS (1)
  1. MYCOBUTIN [Suspect]
     Dosage: UNK
     Route: 048
     Dates: start: 2013

REACTIONS (3)
  - Intentional drug misuse [Unknown]
  - Dysphagia [Unknown]
  - Product taste abnormal [Unknown]
